FAERS Safety Report 14216188 (Version 4)
Quarter: 2018Q4

REPORT INFORMATION
  Report Type: Spontaneous
  Country: NL (occurrence: NL)
  Receive Date: 20171122
  Receipt Date: 20181005
  Transmission Date: 20190204
  Serious: Yes (Death, Other)
  Sender: FDA-Public Use
  Company Number: NL-NAPPMUNDI-USA-2017-0141703

PATIENT
  Sex: Male

DRUGS (1)
  1. OXYCODONE HYDROCHLORIDE (SIMILAR TO NDA 22-272) [Suspect]
     Active Substance: OXYCODONE HYDROCHLORIDE
     Indication: COMPRESSION FRACTURE
     Route: 048

REACTIONS (4)
  - Death [Fatal]
  - Fall [Recovered/Resolved]
  - Delirium [Recovered/Resolved]
  - Unevaluable event [Unknown]
